FAERS Safety Report 8717040 (Version 2)
Quarter: 2012Q4

REPORT INFORMATION
  Report Type: 
  Country: US (occurrence: US)
  Receive Date: 20120810
  Receipt Date: 20120902
  Transmission Date: 20130627
  Serious: Yes (Other)
  Sender: FDA-Public Use
  Company Number: US-PFIZER INC-2012191217

PATIENT
  Age: 96 Year
  Sex: Female
  Weight: 36 kg

DRUGS (6)
  1. ALPRAZOLAM [Suspect]
     Dosage: 0.5 mg, 2x/day
     Route: 048
     Dates: start: 20120622
  2. SEROQUEL [Suspect]
     Indication: DEMENTIA ALZHEIMER^S TYPE
     Dosage: UNK
  3. NAMENDA [Concomitant]
     Indication: DEMENTIA ALZHEIMER^S TYPE
     Dosage: 0.1 mg, 2x/day
  4. PLAVIX [Concomitant]
     Dosage: 75 mg, 2x/week
  5. MIRTAZAPINE [Concomitant]
     Indication: ANTIDEPRESSANT THERAPY
     Dosage: 7.5 mg, daily in morning
  6. CYPROHEPTADINE [Concomitant]
     Dosage: one and half teaspoonful daily every night

REACTIONS (11)
  - Gait disturbance [Unknown]
  - Hypersomnia [Recovered/Resolved]
  - Muscular weakness [Recovered/Resolved]
  - Dysstasia [Recovered/Resolved]
  - Immobile [Recovered/Resolved]
  - Sedation [Recovered/Resolved]
  - Vision blurred [Recovered/Resolved]
  - Pollakiuria [Unknown]
  - Decreased appetite [Unknown]
  - Weight decreased [Unknown]
  - Withdrawal syndrome [Unknown]
